FAERS Safety Report 6059938-4 (Version None)
Quarter: 2009Q1

REPORT INFORMATION
  Report Type: 
  Country: None (occurrence: None)
  Receive Date: 20090128
  Receipt Date: 20090113
  Transmission Date: 20090719
  Serious: Yes (Hospitalization)
  Sender: FDA-Public Use
  Company Number: 2009S1000750

PATIENT
  Age: 71 Year
  Sex: Male

DRUGS (5)
  1. OMEPRAZOLE [Suspect]
     Indication: DYSPEPSIA
     Dosage: 40 MG; DAILY; ORAL
     Route: 048
     Dates: start: 20080403, end: 20080412
  2. DIOVAN HCT [Concomitant]
  3. HUMALOG [Concomitant]
  4. LANTUS [Concomitant]
  5. SIMVASTATIN [Concomitant]

REACTIONS (3)
  - NODULAR VASCULITIS [None]
  - PYREXIA [None]
  - RASH PUSTULAR [None]
